FAERS Safety Report 5077531-7 (Version None)
Quarter: 2006Q3

REPORT INFORMATION
  Report Type: 
  Country: None (occurrence: None)
  Receive Date: 20060810
  Receipt Date: 20060319
  Transmission Date: 20061208
  Serious: No
  Sender: FDA-Public Use
  Company Number: US-GLAXOSMITHKLINE-A0599209A

PATIENT
  Sex: Male

DRUGS (3)
  1. PAXIL [Suspect]
     Indication: DEPRESSION
     Dosage: 25MG UNKNOWN
     Route: 048
  2. WELLBUTRIN [Suspect]
     Indication: DRUG USE FOR UNKNOWN INDICATION
     Route: 065
  3. NO CONCURRENT MEDICATION [Concomitant]

REACTIONS (3)
  - DEPRESSION [None]
  - SEXUAL DYSFUNCTION [None]
  - WEIGHT INCREASED [None]
